FAERS Safety Report 22095986 (Version 1)
Quarter: 2023Q1

REPORT INFORMATION
  Report Type: Spontaneous
  Country: US (occurrence: US)
  Receive Date: 20230315
  Receipt Date: 20230315
  Transmission Date: 20230418
  Serious: No
  Sender: FDA-Public Use
  Company Number: US-Teikoku Pharma USA-TPU2023-00106

PATIENT
  Sex: Female
  Weight: 54.480 kg

DRUGS (6)
  1. LIDODERM [Suspect]
     Active Substance: LIDOCAINE
     Indication: Intervertebral disc protrusion
     Route: 061
  2. LIDODERM [Suspect]
     Active Substance: LIDOCAINE
     Indication: Arthritis
  3. LIDOCAINE PATCH [Suspect]
     Active Substance: LIDOCAINE
     Indication: Intervertebral disc protrusion
     Route: 061
  4. LIDOCAINE PATCH [Suspect]
     Active Substance: LIDOCAINE
     Indication: Arthritis
  5. XANAX [Concomitant]
     Active Substance: ALPRAZOLAM
     Indication: Insomnia
  6. ALPRAZOLAM [Concomitant]
     Active Substance: ALPRAZOLAM
     Indication: Anxiety

REACTIONS (2)
  - Drug ineffective for unapproved indication [Unknown]
  - Inappropriate schedule of product administration [Unknown]
